FAERS Safety Report 19129755 (Version 1)
Quarter: 2021Q2

REPORT INFORMATION
  Report Type: Spontaneous
  Country: US (occurrence: US)
  Receive Date: 20210413
  Receipt Date: 20210413
  Transmission Date: 20210717
  Serious: No
  Sender: FDA-Public Use
  Company Number: US-TOPROL-2020000360

PATIENT
  Sex: Female

DRUGS (3)
  1. METOPROLOL SUCCINATE. [Suspect]
     Active Substance: METOPROLOL SUCCINATE
     Dosage: 25 MG, UNK
  2. LYNPARZA [Concomitant]
     Active Substance: OLAPARIB
     Dosage: 200 MG, BID
     Dates: end: 20200601
  3. LYNPARZA [Concomitant]
     Active Substance: OLAPARIB
     Dosage: 200 MG, BID
     Dates: start: 20200608

REACTIONS (1)
  - Off label use [Unknown]
